FAERS Safety Report 6581471-1 (Version None)
Quarter: 2010Q1

REPORT INFORMATION
  Report Type: 
  Country: None (occurrence: None)
  Receive Date: 20100215
  Receipt Date: 20100208
  Transmission Date: 20100710
  Serious: Yes (Hospitalization)
  Sender: FDA-Public Use
  Company Number: A0844294A

PATIENT
  Age: 50 Year
  Sex: Male
  Weight: 63.6 kg

DRUGS (1)
  1. AVANDAMET [Suspect]
     Route: 048
     Dates: start: 20011201, end: 20040801

REACTIONS (3)
  - CEREBROVASCULAR ACCIDENT [None]
  - CHEST PAIN [None]
  - RESPIRATORY DISTRESS [None]
